FAERS Safety Report 6150016-2 (Version None)
Quarter: 2009Q2

REPORT INFORMATION
  Report Type: 
  Country: None (occurrence: None)
  Receive Date: 20090409
  Receipt Date: 20090331
  Transmission Date: 20091009
  Serious: Yes (Hospitalization)
  Sender: FDA-Public Use
  Company Number: B0567758A

PATIENT
  Sex: Male

DRUGS (9)
  1. SERETIDE [Suspect]
     Indication: ASTHMA
     Dosage: 2PUFF PER DAY
     Route: 055
  2. INNOHEP [Suspect]
     Indication: VENOUS THROMBOSIS
     Dosage: 18000IUAX PER DAY
     Route: 058
     Dates: start: 20081218, end: 20081224
  3. KARDEGIC [Suspect]
     Dosage: 75MG PER DAY
     Route: 048
  4. PLAVIX [Suspect]
     Indication: PROPHYLAXIS
     Dosage: 75MG PER DAY
     Route: 048
  5. NEXIUM [Suspect]
     Indication: PROPHYLAXIS
     Dosage: 40MG PER DAY
     Route: 048
  6. TRINITRINE [Suspect]
     Route: 048
  7. ZANIDIP [Concomitant]
     Dosage: 10MG PER DAY
     Route: 048
  8. ZOCOR [Concomitant]
     Dosage: 20MG PER DAY
     Route: 048
  9. CARDENSIEL [Concomitant]
     Dosage: 2.5MG PER DAY
     Route: 048

REACTIONS (3)
  - GINGIVAL BLEEDING [None]
  - PANCYTOPENIA [None]
  - THROMBOCYTOPENIA [None]
